FAERS Safety Report 7247153-8 (Version None)
Quarter: 2011Q1

REPORT INFORMATION
  Report Type: 
  Country: None (occurrence: None)
  Receive Date: 20110127
  Receipt Date: 20101004
  Transmission Date: 20110831
  Serious: No
  Sender: FDA-Public Use
  Company Number: US-BAUSCH-2010BL005648

PATIENT
  Age: 50 Year
  Sex: Female

DRUGS (2)
  1. CLARITIN-D [Concomitant]
     Indication: SEASONAL ALLERGY
  2. ALAWAY [Suspect]
     Indication: EYE ALLERGY
     Route: 047
     Dates: start: 20100927, end: 20100928

REACTIONS (2)
  - EYE IRRITATION [None]
  - EYE PRURITUS [None]
